FAERS Safety Report 17678071 (Version 4)
Quarter: 2021Q2

REPORT INFORMATION
  Report Type: Spontaneous
  Country: US (occurrence: US)
  Receive Date: 20200417
  Receipt Date: 20210416
  Transmission Date: 20210716
  Serious: Yes (Other)
  Sender: FDA-Public Use
  Company Number: US-ASTRAZENECA-2020SE51075

PATIENT
  Age: 27567 Day
  Sex: Female
  Weight: 81.6 kg

DRUGS (41)
  1. HYDROCODONE?APAP [Concomitant]
     Active Substance: ACETAMINOPHEN\HYDROCODONE
     Indication: PAIN
     Dates: start: 200812, end: 201210
  2. OXYCODONE AND ACETAMINOPHEN [Concomitant]
     Active Substance: ACETAMINOPHEN\OXYCODONE HYDROCHLORIDE
     Indication: PAIN
     Dates: start: 201002, end: 201810
  3. MELOXICAM. [Concomitant]
     Active Substance: MELOXICAM
     Indication: PAIN
     Dates: start: 201004, end: 201209
  4. FUROSEMIDE. [Concomitant]
     Active Substance: FUROSEMIDE
     Indication: SWELLING
  5. ACTONEL [Concomitant]
     Active Substance: RISEDRONATE SODIUM
  6. SMZ?TMP [Concomitant]
     Active Substance: SULFAMETHOXAZOLE\TRIMETHOPRIM
  7. FLUTICASONE. [Concomitant]
     Active Substance: FLUTICASONE
  8. PROAIR HFA [Concomitant]
     Active Substance: ALBUTEROL SULFATE
  9. PREMARIN [Concomitant]
     Active Substance: ESTROGENS, CONJUGATED
  10. NASONEX [Concomitant]
     Active Substance: MOMETASONE FUROATE
  11. GABAPENTIN. [Concomitant]
     Active Substance: GABAPENTIN
  12. METAXALONE. [Concomitant]
     Active Substance: METAXALONE
  13. CELEBREX [Concomitant]
     Active Substance: CELECOXIB
  14. AZITHROMYCIN ANHYDROUS. [Concomitant]
     Active Substance: AZITHROMYCIN ANHYDROUS
     Indication: INFECTION
     Dates: start: 200903
  15. LEVOTHYROXINE. [Concomitant]
     Active Substance: LEVOTHYROXINE
  16. ETODOLAC. [Concomitant]
     Active Substance: ETODOLAC
  17. KLOR?CON [Concomitant]
     Active Substance: POTASSIUM CHLORIDE
  18. NYSTATIN. [Concomitant]
     Active Substance: NYSTATIN
  19. ATENOLOL. [Concomitant]
     Active Substance: ATENOLOL
  20. PRILOSEC [Suspect]
     Active Substance: OMEPRAZOLE MAGNESIUM
     Indication: GASTROOESOPHAGEAL REFLUX DISEASE
     Dosage: 20.0MG UNKNOWN
     Route: 048
     Dates: start: 2011, end: 202004
  21. CEPHALEXIN. [Concomitant]
     Active Substance: CEPHALEXIN
     Indication: INFECTION
  22. HYDROCODONE [Concomitant]
     Active Substance: HYDROCODONE
  23. PREDNISONE. [Concomitant]
     Active Substance: PREDNISONE
  24. TRAMADOL HCL [Concomitant]
     Active Substance: TRAMADOL HYDROCHLORIDE
  25. TIZANIDINE HCL [Concomitant]
     Active Substance: TIZANIDINE HYDROCHLORIDE
  26. TOVIAZ [Concomitant]
     Active Substance: FESOTERODINE FUMARATE
  27. SULINDAC. [Concomitant]
     Active Substance: SULINDAC
  28. PRILOSEC OTC [Suspect]
     Active Substance: OMEPRAZOLE MAGNESIUM
     Indication: GASTROOESOPHAGEAL REFLUX DISEASE
     Dosage: 20.0MG UNKNOWN
     Route: 048
     Dates: start: 2014
  29. CIPROFLOXACIN. [Concomitant]
     Active Substance: CIPROFLOXACIN
     Indication: INFECTION
  30. RAMIPRIL. [Concomitant]
     Active Substance: RAMIPRIL
  31. AMOXICILLIN. [Concomitant]
     Active Substance: AMOXICILLIN
     Indication: INFECTION
  32. ENABLEX [Concomitant]
     Active Substance: DARIFENACIN HYDROBROMIDE
  33. OXAPROZIN. [Concomitant]
     Active Substance: OXAPROZIN
  34. TRAMADOL. [Concomitant]
     Active Substance: TRAMADOL
     Indication: PAIN
     Dates: start: 200906
  35. DICLOFENAC SODIUM. [Concomitant]
     Active Substance: DICLOFENAC SODIUM
  36. TAMSULOSIN [Concomitant]
     Active Substance: TAMSULOSIN
  37. CLONIDINE. [Concomitant]
     Active Substance: CLONIDINE
  38. PRILOSEC OTC [Suspect]
     Active Substance: OMEPRAZOLE MAGNESIUM
     Indication: GASTROOESOPHAGEAL REFLUX DISEASE
     Route: 048
     Dates: start: 201001, end: 202004
  39. ARMOUR THYROID [Concomitant]
     Active Substance: THYROID, PORCINE
  40. INTEGRA [Concomitant]
     Active Substance: DIETARY SUPPLEMENT
  41. ALENDRONATE [Concomitant]
     Active Substance: ALENDRONATE SODIUM

REACTIONS (4)
  - Renal failure [Not Recovered/Not Resolved]
  - Chronic kidney disease [Not Recovered/Not Resolved]
  - Nephrogenic anaemia [Unknown]
  - Acute kidney injury [Unknown]

NARRATIVE: CASE EVENT DATE: 20140128
